FAERS Safety Report 9904477 (Version 1)
Quarter: 2014Q1

REPORT INFORMATION
  Report Type: Spontaneous
  Country: DK (occurrence: DK)
  Receive Date: 20140218
  Receipt Date: 20140218
  Transmission Date: 20141002
  Serious: Yes (Hospitalization)
  Sender: FDA-Public Use
  Company Number: DK-BAYER-2014-020654

PATIENT
  Age: 75 Year
  Sex: Male
  Weight: 65 kg

DRUGS (4)
  1. ASPIRIN [Suspect]
     Route: 048
  2. ASPIRIN [Suspect]
     Dosage: 100 MG, QD
     Route: 048
  3. PRASUGREL [Suspect]
     Indication: ANGINA PECTORIS
     Dosage: 60 MG, SINGLE
     Route: 048
  4. PRASUGREL [Suspect]
     Indication: ANGINA PECTORIS
     Dosage: 5 MG, QD
     Route: 048

REACTIONS (1)
  - Dysphagia [Recovered/Resolved]
